FAERS Safety Report 23140342 (Version 2)
Quarter: 2023Q4

REPORT INFORMATION
  Report Type: Report from Study
  Country: IT (occurrence: IT)
  Receive Date: 20231102
  Receipt Date: 20231113
  Transmission Date: 20240109
  Serious: Yes (Hospitalization)
  Sender: FDA-Public Use
  Company Number: IT-GENMAB-2023-00015

PATIENT
  Age: 82 Year
  Sex: Female
  Weight: 44 kg

DRUGS (15)
  1. EPCORITAMAB [Suspect]
     Active Substance: EPCORITAMAB
     Indication: Diffuse large B-cell lymphoma stage IV
     Dosage: C1D1
     Route: 058
     Dates: start: 20221013, end: 20221013
  2. EPCORITAMAB [Suspect]
     Active Substance: EPCORITAMAB
     Dosage: C1D8
     Route: 058
     Dates: start: 20221020, end: 20221020
  3. EPCORITAMAB [Suspect]
     Active Substance: EPCORITAMAB
     Dosage: C1D15 - C2D1
     Route: 058
     Dates: start: 20221027, end: 20221110
  4. GEMCITABINE [Suspect]
     Active Substance: GEMCITABINE
     Indication: Diffuse large B-cell lymphoma stage IV
     Dosage: C1D1 - C2D1
     Route: 042
     Dates: start: 20221013, end: 20221110
  5. OXALIPLATIN [Suspect]
     Active Substance: OXALIPLATIN
     Indication: Diffuse large B-cell lymphoma stage IV
     Dosage: C1D1 - C2D1
     Route: 042
     Dates: start: 20221013, end: 20221110
  6. ACETAMINOPHEN [Concomitant]
     Active Substance: ACETAMINOPHEN
     Indication: Premedication
     Dosage: 1000 MILLIGRAM, SINGLE
     Route: 048
     Dates: start: 20221110, end: 20221110
  7. CHLORPHENIRAMINE MALEATE [Concomitant]
     Active Substance: CHLORPHENIRAMINE MALEATE
     Indication: Premedication
     Dosage: 10 MILLIGRAM, SINGLE
     Route: 042
     Dates: start: 20221110, end: 20221110
  8. OMEPRAZOLE [Concomitant]
     Active Substance: OMEPRAZOLE
     Indication: Prophylaxis
     Dosage: 20 MILLIGRAM, QD (QAM)
     Route: 048
     Dates: start: 20220413
  9. ENALAPRIL [Concomitant]
     Active Substance: ENALAPRIL
     Dosage: 10 MILLIGRAM, QD (QAM)
     Route: 048
     Dates: start: 1996
  10. ACYCLOVIR [Concomitant]
     Active Substance: ACYCLOVIR
     Indication: Prophylaxis
     Dosage: 400 MILLIGRAM, Q12H
     Route: 048
     Dates: start: 20220413
  11. SULFAMETHOXAZOLE\TRIMETHOPRIM [Concomitant]
     Active Substance: SULFAMETHOXAZOLE\TRIMETHOPRIM
     Indication: Antifungal prophylaxis
     Dosage: 800-160, TWICE PER DAY, THREE TIMES A WEEK
     Route: 048
     Dates: start: 20220413
  12. URSODIOL [Concomitant]
     Active Substance: URSODIOL
     Indication: Prophylaxis
     Dosage: 450 MILLIGRAM, QD
     Route: 048
     Dates: start: 2010
  13. FOLIC ACID [Concomitant]
     Active Substance: FOLIC ACID
     Indication: Prophylaxis
     Dosage: 5 MILLIGRAM, QD
     Route: 048
     Dates: start: 20220413
  14. FILGRASTIM [Concomitant]
     Active Substance: FILGRASTIM
     Indication: Prophylaxis
     Dosage: 30 MILLION INTERNATIONAL UNIT, PRN
     Route: 058
     Dates: start: 20221202
  15. LEVOFLOXACIN [Concomitant]
     Active Substance: LEVOFLOXACIN
     Indication: COVID-19
     Dosage: 500 MILLIGRAM, QD
     Route: 048
     Dates: start: 20221225, end: 2023

REACTIONS (1)
  - Pneumonia viral [Recovered/Resolved]

NARRATIVE: CASE EVENT DATE: 20230103
